FAERS Safety Report 23364187 (Version 2)
Quarter: 2025Q3

REPORT INFORMATION
  Report Type: Spontaneous
  Country: EU (occurrence: EU)
  Receive Date: 20240104
  Receipt Date: 20250723
  Transmission Date: 20251021
  Serious: Yes (Hospitalization, Other)
  Sender: SANDOZ
  Company Number: EU-TEVA-2023-PT-2922903

PATIENT
  Age: 91 Year
  Sex: Female

DRUGS (6)
  1. LEVOFLOXACIN [Suspect]
     Active Substance: LEVOFLOXACIN
     Indication: Pneumonia bacterial
     Route: 048
  2. QUETIAPINE [Suspect]
     Active Substance: QUETIAPINE
     Indication: Product used for unknown indication
     Dosage: 225 MILLIGRAM QD
     Route: 048
  3. METHYLPREDNISOLONE [Concomitant]
     Active Substance: METHYLPREDNISOLONE
     Indication: Renal impairment
     Dosage: 40 MILLIGRAM QD
     Route: 065
  4. Oxig?nio [Concomitant]
     Indication: Product used for unknown indication
     Route: 065
  5. PIPERACILLIN SODIUM\TAZOBACTAM SODIUM [Concomitant]
     Active Substance: PIPERACILLIN SODIUM\TAZOBACTAM SODIUM
     Indication: Renal impairment
     Route: 065
  6. PREDNISOLONE [Concomitant]
     Active Substance: PREDNISOLONE
     Indication: Lung disorder
     Route: 065

REACTIONS (5)
  - Pulmonary toxicity [Recovered/Resolved]
  - Condition aggravated [Recovering/Resolving]
  - Toxicity to various agents [Recovered/Resolved]
  - Interstitial lung disease [Recovering/Resolving]
  - Treatment failure [Unknown]
